FAERS Safety Report 9240222 (Version 5)
Quarter: 2016Q3

REPORT INFORMATION
  Report Type: Spontaneous
  Country: US (occurrence: US)
  Receive Date: 20130418
  Receipt Date: 20160907
  Transmission Date: 20161109
  Serious: Yes (Other)
  Sender: FDA-Public Use
  Company Number: US-009507513-1304USA008270

PATIENT
  Sex: Male
  Weight: 90.7 kg

DRUGS (4)
  1. CLINDAMYCIN HYDROCHLORIDE. [Concomitant]
     Active Substance: CLINDAMYCIN HYDROCHLORIDE
     Indication: INFECTION
     Dosage: UNK
     Route: 065
     Dates: start: 200201, end: 2011
  2. CLINDAMYCIN HYDROCHLORIDE. [Concomitant]
     Active Substance: CLINDAMYCIN HYDROCHLORIDE
     Indication: INFECTION
  3. FINASTERIDE. [Suspect]
     Active Substance: FINASTERIDE
     Indication: BENIGN PROSTATIC HYPERPLASIA
     Dosage: 5 MG, UNK
     Route: 048
     Dates: start: 20060627, end: 20111021
  4. PROSCAR [Suspect]
     Active Substance: FINASTERIDE
     Indication: BENIGN PROSTATIC HYPERPLASIA
     Dosage: 5 MG, QD
     Route: 048
     Dates: start: 20020314, end: 20060303

REACTIONS (15)
  - Hypertension [Unknown]
  - Erectile dysfunction [Not Recovered/Not Resolved]
  - Colectomy [Recovered/Resolved]
  - Cognitive disorder [Not Recovered/Not Resolved]
  - Myocardial infarction [Recovered/Resolved]
  - Aortic aneurysm [Recovered/Resolved]
  - Male orgasmic disorder [Unknown]
  - Sleep disorder [Not Recovered/Not Resolved]
  - Dizziness [Unknown]
  - Anxiety [Unknown]
  - Sexual dysfunction [Not Recovered/Not Resolved]
  - Stress [Unknown]
  - Post-traumatic stress disorder [Unknown]
  - Sleep apnoea syndrome [Unknown]
  - Prostatitis [Recovering/Resolving]

NARRATIVE: CASE EVENT DATE: 200404
